FAERS Safety Report 6973512-4 (Version None)
Quarter: 2010Q3

REPORT INFORMATION
  Report Type: 
  Country: None (occurrence: None)
  Receive Date: 20100907
  Receipt Date: 20100820
  Transmission Date: 20110219
  Serious: Yes (Other)
  Sender: FDA-Public Use
  Company Number: 2010PV000064

PATIENT
  Age: 18 Year
  Sex: Male

DRUGS (1)
  1. DEPOCYT [Suspect]
     Indication: ACUTE MYELOID LEUKAEMIA
     Dosage: 50 MG;X 3; INTH
     Route: 037

REACTIONS (3)
  - HAEMORRHAGE [None]
  - HEADACHE [None]
  - PAPILLOEDEMA [None]
